FAERS Safety Report 18569607 (Version 3)
Quarter: 2020Q4

REPORT INFORMATION
  Report Type: Spontaneous
  Country: US (occurrence: US)
  Receive Date: 20201202
  Receipt Date: 20201223
  Transmission Date: 20210114
  Serious: Yes (Hospitalization, Other)
  Sender: FDA-Public Use
  Company Number: US-PRINSTON PHARMACEUTICAL INC.-2020PRN00226

PATIENT
  Age: 87 Year
  Sex: Female
  Weight: 50.34 kg

DRUGS (12)
  1. CLOPIDOGREL BISULFATE. [Concomitant]
     Active Substance: CLOPIDOGREL BISULFATE
     Dosage: 75 MG, 1X/DAY
     Route: 048
  2. LISINOPRIL. [Suspect]
     Active Substance: LISINOPRIL
     Dosage: 5 MG, ONCE ^BEFORE IT WAS LIGHT OUTSIDE^
     Route: 048
     Dates: start: 20191106, end: 20191106
  3. ESTROGENS, CONJUGATED [Concomitant]
     Active Substance: ESTROGENS, CONJUGATED
     Dosage: 0.625 MG, 1X/DAY
     Route: 048
  4. PRAMOXINE, HYDROCORTISONE [Concomitant]
     Dosage: 1 DOSAGE UNIT, 3X/DAY
     Route: 061
  5. ASPIRIN. [Concomitant]
     Active Substance: ASPIRIN
     Dosage: 325 MG, 1X/DAY
     Route: 048
  6. EZETIMIBE. [Concomitant]
     Active Substance: EZETIMIBE
     Dosage: 10 MG, 1X/DAY
     Route: 048
  7. SENNOSIDES, DOCUSATE SODIUM [Concomitant]
     Active Substance: DOCUSATE SODIUM\SENNOSIDES
     Dosage: 1 TABLET, 2X/DAY AS NEEDED
     Route: 048
  8. POLYETHYLENE GLYCOL 3350. [Concomitant]
     Active Substance: POLYETHYLENE GLYCOL 3350
     Dosage: 17 G, AT BEDTIME AS NEEDED
     Route: 048
  9. FUROSEMIDE. [Concomitant]
     Active Substance: FUROSEMIDE
     Dosage: 40 MG, 1X/DAY
     Route: 048
  10. AMLODIPINE [Concomitant]
     Active Substance: AMLODIPINE BESYLATE
     Dosage: 5 MG, 1X/DAY; DO NOT TAKE IF YOUR SBP {130
     Route: 048
  11. SIMVASTATIN. [Concomitant]
     Active Substance: SIMVASTATIN
     Dosage: 20 MG, 1X/DAY
     Route: 048
  12. POTASSIUM CHLORIDE. [Concomitant]
     Active Substance: POTASSIUM CHLORIDE
     Dosage: 20 MEQ, 1X/DAY
     Route: 048

REACTIONS (17)
  - Acute coronary syndrome [Unknown]
  - Angioedema [Not Recovered/Not Resolved]
  - Stress [Unknown]
  - Dyspnoea [Not Recovered/Not Resolved]
  - Arteriosclerosis [Unknown]
  - Hypothyroidism [Unknown]
  - Pain [Unknown]
  - Chronic obstructive pulmonary disease [Unknown]
  - Fear [Unknown]
  - Leukocytosis [Recovered/Resolved]
  - Dermatitis contact [Recovering/Resolving]
  - Hepatic cirrhosis [Unknown]
  - Hypertension [Unknown]
  - Eye disorder [Unknown]
  - Bundle branch block left [Unknown]
  - Pectus excavatum [Unknown]
  - Product substitution issue [Recovered/Resolved]

NARRATIVE: CASE EVENT DATE: 20191008
